FAERS Safety Report 6581683-7 (Version None)
Quarter: 2010Q1

REPORT INFORMATION
  Report Type: 
  Country: None (occurrence: None)
  Receive Date: 20100215
  Receipt Date: 20100105
  Transmission Date: 20100710
  Serious: Yes (Death)
  Sender: FDA-Public Use
  Company Number: US-TYCO HEALTHCARE/MALLINCKRODT-T201000216

PATIENT
  Age: 36 Year
  Sex: Male

DRUGS (4)
  1. TRAMADOL [Suspect]
     Dosage: UNK
  2. ALPRAZOLAM [Suspect]
  3. CYCLOBENZAPRINE [Suspect]
  4. BENZODIAZEPINE [Suspect]

REACTIONS (1)
  - COMPLETED SUICIDE [None]
